FAERS Safety Report 9097031 (Version 1)
Quarter: 2013Q1

REPORT INFORMATION
  Report Type: Spontaneous
  Country: US (occurrence: None)
  Receive Date: 20130125
  Receipt Date: 20130125
  Transmission Date: 20140127
  Serious: No
  Sender: FDA-Public Use
  Company Number: FK201300097

PATIENT
  Age: 27 Year
  Sex: Male

DRUGS (1)
  1. DEXAMETHASONE INJECTION (DEXAMETHASONE SODIUM [Suspect]
     Indication: PRODUCT USED FOR UNKNOWN INDICATION

REACTIONS (4)
  - Osteonecrosis [None]
  - Activities of daily living impaired [None]
  - Osteoporosis [None]
  - Muscle atrophy [None]
